FAERS Safety Report 6859808-5 (Version None)
Quarter: 2010Q3

REPORT INFORMATION
  Report Type: 
  Country: None (occurrence: None)
  Receive Date: 20100720
  Receipt Date: 20100706
  Transmission Date: 20110219
  Serious: Yes (Hospitalization)
  Sender: FDA-Public Use
  Company Number: US-BAYER-201020531NA

PATIENT
  Age: 33 Year
  Sex: Female
  Weight: 94 kg

DRUGS (5)
  1. YAZ [Suspect]
     Indication: PRODUCT USED FOR UNKNOWN INDICATION
     Route: 048
     Dates: start: 20080409, end: 20080514
  2. ASCORBIC ACID [Concomitant]
     Dates: start: 20010101
  3. IBUPROFEN [Concomitant]
     Dates: start: 20010101
  4. LEVOTHYROXINE SODIUM [Concomitant]
     Route: 048
  5. ADIPEX-P [Concomitant]
     Route: 048

REACTIONS (8)
  - CHEST PAIN [None]
  - DYSPNOEA [None]
  - LUNG INFILTRATION [None]
  - PLEURAL EFFUSION [None]
  - PULMONARY EMBOLISM [None]
  - PULMONARY HYPERTENSION [None]
  - PULMONARY INFARCTION [None]
  - PYREXIA [None]
